FAERS Safety Report 14064663 (Version 6)
Quarter: 2017Q4

REPORT INFORMATION
  Report Type: Report from Study
  Country: IE (occurrence: IE)
  Receive Date: 20171009
  Receipt Date: 20171220
  Transmission Date: 20180321
  Serious: Yes (Other)
  Sender: FDA-Public Use
  Company Number: IE-JNJFOC-20171006371

PATIENT
  Age: 38 Year
  Sex: Female

DRUGS (6)
  1. BETNOVATE [Concomitant]
     Active Substance: BETAMETHASONE
     Route: 065
  2. STELARA [Suspect]
     Active Substance: USTEKINUMAB
     Indication: PSORIASIS
     Route: 058
     Dates: start: 20170610
  3. DERMOVATE [Concomitant]
     Active Substance: CLOBETASOL
     Route: 065
  4. COCOIS [Concomitant]
     Route: 065
  5. STELARA [Suspect]
     Active Substance: USTEKINUMAB
     Indication: PSORIASIS
     Route: 058
     Dates: start: 2017
  6. GENTISONE [Concomitant]
     Route: 065

REACTIONS (7)
  - Product use issue [Unknown]
  - Ear infection [Not Recovered/Not Resolved]
  - Inappropriate schedule of drug administration [Unknown]
  - Off label use [Unknown]
  - Cervix carcinoma [Unknown]
  - Hysterectomy [Unknown]
  - Post procedural infection [Unknown]

NARRATIVE: CASE EVENT DATE: 2017
